FAERS Safety Report 7954253-3 (Version None)
Quarter: 2011Q4

REPORT INFORMATION
  Report Type: 
  Country: None (occurrence: None)
  Receive Date: 20111129
  Receipt Date: 20111116
  Transmission Date: 20120403
  Serious: Yes (Other)
  Sender: FDA-Public Use
  Company Number: 20110678

PATIENT
  Age: 30 Year
  Sex: Female

DRUGS (3)
  1. HYDROXYZINE HCL [Suspect]
     Indication: NAUSEA
     Dosage: INTRAVENOUS
     Route: 042
     Dates: start: 20110921, end: 20110921
  2. HYDROCODONE [Concomitant]
  3. XANAX [Concomitant]

REACTIONS (4)
  - CHEST PAIN [None]
  - INCORRECT ROUTE OF DRUG ADMINISTRATION [None]
  - BURNING SENSATION [None]
  - VENOUS STENOSIS [None]
